FAERS Safety Report 10200782 (Version 2)
Quarter: 2014Q2

REPORT INFORMATION
  Report Type: Spontaneous
  Country: US (occurrence: US)
  Receive Date: 20140528
  Receipt Date: 20140528
  Transmission Date: 20141212
  Serious: Yes (Hospitalization)
  Sender: FDA-Public Use
  Company Number: US-ASTRAZENECA-2014SE10826

PATIENT
  Age: 57 Year
  Sex: Male

DRUGS (2)
  1. NEXIUM [Suspect]
     Indication: GASTROOESOPHAGEAL REFLUX DISEASE
     Route: 048
  2. NEXIUM [Suspect]
     Indication: GASTROOESOPHAGEAL REFLUX DISEASE
     Route: 048
     Dates: start: 200710

REACTIONS (15)
  - Spinal compression fracture [Unknown]
  - Osteoporosis [Unknown]
  - Hypoaesthesia [Unknown]
  - Joint range of motion decreased [Unknown]
  - Asthenia [Unknown]
  - Atrophy [Unknown]
  - Mobility decreased [Unknown]
  - Joint effusion [Unknown]
  - Anxiety [Unknown]
  - Emotional distress [Unknown]
  - Discomfort [Unknown]
  - Ligament sprain [Unknown]
  - Muscle spasms [Unknown]
  - Disturbance in attention [Unknown]
  - Myalgia [Unknown]
